FAERS Safety Report 4364710-7 (Version None)
Quarter: 2004Q2

REPORT INFORMATION
  Report Type: 
  Country: None (occurrence: None)
  Receive Date: 20040521
  Receipt Date: 20040505
  Transmission Date: 20050107
  Serious: Yes (Hospitalization, Disabling)
  Sender: FDA-Public Use
  Company Number: 2004SE02579

PATIENT
  Age: 72 Year
  Sex: Female

DRUGS (2)
  1. MARCAINE [Suspect]
     Indication: EPIDURAL ANAESTHESIA
     Dosage: 15 MG/HR ED
     Route: 008
     Dates: start: 20010914, end: 20010914
  2. MARCAINE [Suspect]
     Indication: EPIDURAL ANAESTHESIA
     Dosage: 8 MG /HR ED
     Route: 008
     Dates: start: 20010914, end: 20010918

REACTIONS (4)
  - DIFFICULTY IN WALKING [None]
  - HYPOAESTHESIA [None]
  - PAIN IN EXTREMITY [None]
  - PAINFUL RESPONSE TO NORMAL STIMULI [None]
